FAERS Safety Report 8155843-8 (Version None)
Quarter: 2012Q1

REPORT INFORMATION
  Report Type: 
  Country: None (occurrence: None)
  Receive Date: 20120222
  Receipt Date: 20120217
  Transmission Date: 20120608
  Serious: Yes (Hospitalization)
  Sender: FDA-Public Use
  Company Number: US-JNJFOC-2010002144

PATIENT
  Age: 58 Year
  Sex: Female
  Weight: 83.9 kg

DRUGS (2)
  1. ACETAMINOPHEN [Suspect]
     Indication: HEADACHE
     Dosage: DAILY DOSE TEXT: 2 CAPLETS EVERY 6 HOURS
     Route: 065
  2. ROLAIDS TAB [Suspect]
     Indication: DYSPEPSIA
     Dosage: DAILY DOSE TEXT: 2 TABLETS 4 TIMES DAILY
     Route: 048

REACTIONS (10)
  - OESOPHAGEAL INFECTION [None]
  - DRUG INEFFECTIVE [None]
  - PRODUCT ODOUR ABNORMAL [None]
  - GASTROINTESTINAL INFECTION [None]
  - LOSS OF CONSCIOUSNESS [None]
  - CHEST PAIN [None]
  - PRODUCT TASTE ABNORMAL [None]
  - GASTROINTESTINAL DISORDER [None]
  - GASTROINTESTINAL INFLAMMATION [None]
  - OESOPHAGEAL DISORDER [None]
